FAERS Safety Report 11334019 (Version 1)
Quarter: 2015Q3

REPORT INFORMATION
  Report Type: Spontaneous
  Country: US (occurrence: US)
  Receive Date: 20150803
  Receipt Date: 20150803
  Transmission Date: 20151125
  Serious: Yes (Other)
  Sender: FDA-Public Use
  Company Number: US-SA-2014SA166462

PATIENT
  Age: 48 Year
  Sex: Male

DRUGS (1)
  1. AMBIEN [Suspect]
     Active Substance: ZOLPIDEM TARTRATE
     Route: 065

REACTIONS (3)
  - Somnambulism [Unknown]
  - Impaired driving ability [Unknown]
  - Memory impairment [Unknown]

NARRATIVE: CASE EVENT DATE: 20141126
